FAERS Safety Report 16318651 (Version 2)
Quarter: 2019Q4

REPORT INFORMATION
  Report Type: Spontaneous
  Country: BR (occurrence: BR)
  Receive Date: 20190516
  Receipt Date: 20191015
  Transmission Date: 20200122
  Serious: Yes (Other)
  Sender: FDA-Public Use
  Company Number: BR-BRISTOL-MYERS SQUIBB COMPANY-BMS-2019-045078

PATIENT
  Sex: Male

DRUGS (1)
  1. HYDREA [Suspect]
     Active Substance: HYDROXYUREA
     Indication: THROMBOCYTOSIS
     Dosage: 500 MILLIGRAM
     Route: 065
     Dates: start: 2017

REACTIONS (2)
  - Immunodeficiency [Unknown]
  - Intentional product use issue [Unknown]

NARRATIVE: CASE EVENT DATE: 2017
